FAERS Safety Report 7353459-4 (Version None)
Quarter: 2011Q1

REPORT INFORMATION
  Report Type: 
  Country: None (occurrence: None)
  Receive Date: 20110315
  Receipt Date: 20110307
  Transmission Date: 20110831
  Serious: Yes (Hospitalization, Other)
  Sender: FDA-Public Use
  Company Number: US-ELI_LILLY_AND_COMPANY-US201103002642

PATIENT
  Sex: Male

DRUGS (3)
  1. TYLENOL (CAPLET) [Concomitant]
     Dosage: UNK, AS NEEDED
  2. CYMBALTA [Suspect]
     Indication: DEPRESSION
     Dosage: 90 MG, DAILY (1/D)
     Dates: start: 20030101, end: 20100301
  3. IBUPROFEN [Concomitant]
     Dosage: UNK, AS NEEDED

REACTIONS (4)
  - HAEMATURIA [None]
  - OBSTRUCTION [None]
  - NEPHROLITHIASIS [None]
  - SUICIDAL IDEATION [None]
